FAERS Safety Report 13108952 (Version 1)
Quarter: 2017Q1

REPORT INFORMATION
  Report Type: Spontaneous
  Country: US (occurrence: US)
  Receive Date: 20170112
  Receipt Date: 20170112
  Transmission Date: 20170428
  Serious: Yes (Life-Threatening, Hospitalization)
  Sender: FDA-Public Use
  Company Number: None

PATIENT
  Age: 76 Year
  Sex: Female
  Weight: 106.6 kg

DRUGS (2)
  1. 500MCG DOFETILIDE CAPSULES (OPENED) [Suspect]
     Active Substance: DOFETILIDE
     Indication: ATRIAL FIBRILLATION
     Dosage: 500 MCG (0.5 MG) MORNING AND NIGHT
     Dates: start: 20160815
  2. 500 MCG DOFETILIDE CAPSULES (SEALED) [Suspect]
     Active Substance: DOFETILIDE

REACTIONS (5)
  - Atrial fibrillation [None]
  - Product substitution issue [None]
  - Pulmonary oedema [None]
  - Cardiac arrest [None]
  - Dyspnoea [None]

NARRATIVE: CASE EVENT DATE: 20161210
